FAERS Safety Report 14589552 (Version 1)
Quarter: 2018Q1

REPORT INFORMATION
  Report Type: Report from Study
  Country: DZ (occurrence: DZ)
  Receive Date: 20180302
  Receipt Date: 20180302
  Transmission Date: 20180509
  Serious: Yes (Other)
  Sender: FDA-Public Use
  Company Number: DZ-ROCHE-2080761

PATIENT

DRUGS (3)
  1. RITUXIMAB. [Suspect]
     Active Substance: RITUXIMAB
     Indication: CHRONIC LYMPHOCYTIC LEUKAEMIA
     Dosage: 375 MG/M2 ON DAY 1 OF EACH CYCLE AND 500 IN THE OTHER CYCLES
     Route: 042
  2. FLUDARABINE [Suspect]
     Active Substance: FLUDARABINE PHOSPHATE
     Indication: CHRONIC LYMPHOCYTIC LEUKAEMIA
     Dosage: ON DAYS 1-3. TREATMENT WAS REPEATED EVERY 4 WEEKS
     Route: 042
  3. CYCLOPHOSPHAMIDE. [Suspect]
     Active Substance: CYCLOPHOSPHAMIDE
     Indication: CHRONIC LYMPHOCYTIC LEUKAEMIA
     Dosage: ON DAYS 1-3. TREATMENT WAS REPEATED EVERY 4 WEEKS.
     Route: 050

REACTIONS (5)
  - Neutropenia [Unknown]
  - Hepatitis B reactivation [Unknown]
  - Thrombocytopenia [Unknown]
  - Anaemia [Unknown]
  - Autoimmune haemolytic anaemia [Unknown]
